FAERS Safety Report 7469947-6 (Version None)
Quarter: 2011Q2

REPORT INFORMATION
  Report Type: 
  Country: None (occurrence: None)
  Receive Date: 20110510
  Receipt Date: 20110505
  Transmission Date: 20111010
  Serious: Yes (Hospitalization, Other)
  Sender: FDA-Public Use
  Company Number: SE-PFIZER INC-2011064172

PATIENT
  Age: 35 Year
  Sex: Female

DRUGS (9)
  1. KAJOS [Concomitant]
     Dosage: 33 MG, UNK
  2. TRAMADOL HCL [Suspect]
     Indication: PAIN
     Dosage: 400 MG, DAILY
     Route: 048
     Dates: start: 20101201
  3. PREDNISOLONE [Concomitant]
     Dosage: 5 MG, UNK
  4. IMOVANE [Concomitant]
     Dosage: 7.5 MG, UNK
  5. EFFEXOR [Suspect]
     Indication: DEPRESSION
     Dosage: 300 MG, DAILY
     Route: 048
     Dates: start: 20101203
  6. SULFASALAZINE [Concomitant]
     Dosage: 500 MG, UNK
  7. OMEPRAZOL [Concomitant]
     Dosage: UNK
  8. MIRTAZAPINE [Suspect]
     Indication: DEPRESSION
     Dosage: 15 MG, DAILY
     Route: 048
     Dates: start: 20101221
  9. PAMOL [Concomitant]
     Dosage: 500 MG, UNK

REACTIONS (3)
  - CONVULSION [None]
  - MUSCLE TWITCHING [None]
  - VENOUS ANGIOMA OF BRAIN [None]
